FAERS Safety Report 17367919 (Version 8)
Quarter: 2020Q1

REPORT INFORMATION
  Report Type: Spontaneous
  Country: US (occurrence: US)
  Receive Date: 20200204
  Receipt Date: 20200320
  Transmission Date: 20200409
  Serious: Yes (Other)
  Sender: FDA-Public Use
  Company Number: NVSC2020US026060

PATIENT
  Age: 47 Year
  Sex: Female

DRUGS (2)
  1. GILENYA [Suspect]
     Active Substance: FINGOLIMOD HYDROCHLORIDE
     Indication: RELAPSING-REMITTING MULTIPLE SCLEROSIS
     Dosage: UNK
     Route: 065
     Dates: start: 201808, end: 20200128
  2. DOTAREM [Concomitant]
     Active Substance: GADOTERATE MEGLUMINE
     Indication: PRODUCT USED FOR UNKNOWN INDICATION
     Dosage: 20 CM3( IV CONTRAST INJECTED :16 CC + WASTED CONTRAST : 4 CC )
     Route: 042

REACTIONS (10)
  - Demyelination [Unknown]
  - Nervous system disorder [Unknown]
  - Multiple sclerosis [Unknown]
  - Visual impairment [Unknown]
  - Road traffic accident [Unknown]
  - JC polyomavirus test positive [Unknown]
  - Clumsiness [Unknown]
  - Amnesia [Unknown]
  - Cognitive disorder [Unknown]
  - Disturbance in attention [Unknown]

NARRATIVE: CASE EVENT DATE: 20191223
